FAERS Safety Report 5496715-7 (Version None)
Quarter: 2007Q4

REPORT INFORMATION
  Report Type: 
  Country: None (occurrence: None)
  Receive Date: 20071023
  Receipt Date: 20071023
  Transmission Date: 20080405
  Serious: Yes (Other)
  Sender: FDA-Public Use
  Company Number: None

PATIENT
  Sex: Male
  Weight: 81.6475 kg

DRUGS (1)
  1. LOVASTATIN [Suspect]
     Indication: BLOOD CHOLESTEROL INCREASED
     Dosage: 400MG  1 PER DAY  PO
     Route: 048
     Dates: start: 20050601, end: 20070901

REACTIONS (6)
  - ARTHRALGIA [None]
  - DECREASED ACTIVITY [None]
  - MYALGIA [None]
  - PAIN IN EXTREMITY [None]
  - PARAESTHESIA [None]
  - RASH [None]
